FAERS Safety Report 4747435-5 (Version None)
Quarter: 2005Q3

REPORT INFORMATION
  Report Type: 
  Country: None (occurrence: None)
  Receive Date: 20050815
  Receipt Date: 20050425
  Transmission Date: 20060218
  Serious: No
  Sender: FDA-Public Use
  Company Number: USA050496506

PATIENT
  Sex: Male

DRUGS (5)
  1. CIALIS [Suspect]
     Dosage: 20 MG
  2. ATENOLOL [Concomitant]
  3. NORVASC [Concomitant]
  4. MAXZIDE [Concomitant]
  5. DIOVAN [Concomitant]

REACTIONS (1)
  - THERAPEUTIC RESPONSE DECREASED [None]
